FAERS Safety Report 9262815 (Version 1)
Quarter: 2013Q2

REPORT INFORMATION
  Report Type: Spontaneous
  Country: US (occurrence: US)
  Receive Date: 20130430
  Receipt Date: 20130430
  Transmission Date: 20140414
  Serious: Yes (Other)
  Sender: FDA-Public Use
  Company Number: PHEH2013US009443

PATIENT
  Sex: Female

DRUGS (1)
  1. ZOMETA [Suspect]
     Dosage: UNK UKN, UNK

REACTIONS (1)
  - Osteonecrosis of jaw [Unknown]
